FAERS Safety Report 7887759-6 (Version None)
Quarter: 2011Q4

REPORT INFORMATION
  Report Type: 
  Country: None (occurrence: None)
  Receive Date: 20111103
  Receipt Date: 20111031
  Transmission Date: 20120403
  Serious: Yes (Other)
  Sender: FDA-Public Use
  Company Number: US-TEVA-307395USA

PATIENT
  Age: 35 Year
  Sex: Female

DRUGS (4)
  1. GROWTH FACTOR [Concomitant]
  2. PACLITAXEL [Suspect]
     Indication: BREAST CANCER
  3. DOXORUBICIN HCL [Concomitant]
     Indication: BREAST CANCER
  4. CYCLOPHOSPHAMIDE [Concomitant]
     Indication: BREAST CANCER

REACTIONS (1)
  - OLIGOHYDRAMNIOS [None]
